FAERS Safety Report 6417109-3 (Version None)
Quarter: 2009Q4

REPORT INFORMATION
  Report Type: 
  Country: None (occurrence: None)
  Receive Date: 20091026
  Receipt Date: 20091009
  Transmission Date: 20100525
  Serious: Yes (Hospitalization)
  Sender: FDA-Public Use
  Company Number: 1000009562

PATIENT
  Age: 20 Year
  Sex: Female

DRUGS (12)
  1. ESCITALOPRAM [Suspect]
     Indication: BIPOLAR DISORDER
     Dosage: (ONCE), ORAL; ORAL
     Route: 048
     Dates: end: 20090801
  2. ESCITALOPRAM [Suspect]
     Indication: BIPOLAR I DISORDER
     Dosage: (ONCE), ORAL; ORAL
     Route: 048
     Dates: end: 20090801
  3. ESCITALOPRAM [Suspect]
     Indication: BIPOLAR DISORDER
     Dosage: (ONCE), ORAL; ORAL
     Route: 048
     Dates: start: 20090802, end: 20090802
  4. ESCITALOPRAM [Suspect]
     Indication: BIPOLAR I DISORDER
     Dosage: (ONCE), ORAL; ORAL
     Route: 048
     Dates: start: 20090802, end: 20090802
  5. DEPAKOTE [Suspect]
     Indication: BIPOLAR DISORDER
     Dosage: (ONCE), ORAL; ORAL
     Route: 048
     Dates: end: 20090801
  6. DEPAKOTE [Suspect]
     Indication: BIPOLAR I DISORDER
     Dosage: (ONCE), ORAL; ORAL
     Route: 048
     Dates: end: 20090801
  7. DEPAKOTE [Suspect]
     Indication: BIPOLAR DISORDER
     Dosage: (ONCE), ORAL; ORAL
     Route: 048
     Dates: start: 20090802, end: 20090802
  8. DEPAKOTE [Suspect]
     Indication: BIPOLAR I DISORDER
     Dosage: (ONCE), ORAL; ORAL
     Route: 048
     Dates: start: 20090802, end: 20090802
  9. DEPAKOTE [Suspect]
     Indication: BIPOLAR DISORDER
     Dosage: ORAL
     Route: 048
     Dates: start: 20090801
  10. DEPAKOTE [Suspect]
     Indication: BIPOLAR I DISORDER
     Dosage: ORAL
     Route: 048
     Dates: start: 20090801
  11. ARIPIPRAZOLE [Suspect]
     Indication: BIPOLAR DISORDER
     Dosage: (ONCE)
     Dates: start: 20090802, end: 20090802
  12. ARIPIPRAZOLE [Suspect]
     Indication: BIPOLAR I DISORDER
     Dosage: (ONCE)
     Dates: start: 20090802, end: 20090802

REACTIONS (8)
  - AMMONIA INCREASED [None]
  - BLOOD LACTIC ACID INCREASED [None]
  - BRAIN OEDEMA [None]
  - DRUG LEVEL ABOVE THERAPEUTIC [None]
  - EXTRAPYRAMIDAL DISORDER [None]
  - MULTIPLE DRUG OVERDOSE INTENTIONAL [None]
  - NERVOUS SYSTEM DISORDER [None]
  - TACHYCARDIA [None]
